FAERS Safety Report 13641011 (Version 1)
Quarter: 2017Q2

REPORT INFORMATION
  Report Type: Spontaneous
  Country: FR (occurrence: FR)
  Receive Date: 20170612
  Receipt Date: 20170612
  Transmission Date: 20170830
  Serious: Yes (Congenital Anomaly)
  Sender: FDA-Public Use
  Company Number: FR-BIOVITRUM-2017FR0554

PATIENT
  Age: 7 Month

DRUGS (1)
  1. KINERET [Suspect]
     Active Substance: ANAKINRA
     Route: 064
     Dates: start: 20160401, end: 20160905

REACTIONS (1)
  - Laryngomalacia [Unknown]

NARRATIVE: CASE EVENT DATE: 20170428
